FAERS Safety Report 10429980 (Version 2)
Quarter: 2014Q4

REPORT INFORMATION
  Report Type: Spontaneous
  Country: US (occurrence: US)
  Receive Date: 20140904
  Receipt Date: 20141105
  Transmission Date: 20150528
  Serious: Yes (Other)
  Sender: FDA-Public Use
  Company Number: US-BAYER-2014-129288

PATIENT
  Age: 30 Year
  Sex: Female

DRUGS (3)
  1. MIRENA [Suspect]
     Active Substance: LEVONORGESTREL
     Indication: CONTRACEPTION
     Dosage: 20 MCG/24HR, CONT
     Route: 015
     Dates: start: 20121213, end: 20140113
  2. HYDROCODONE [Concomitant]
     Active Substance: HYDROCODONE
  3. ZOLOFT [Concomitant]
     Active Substance: SERTRALINE HYDROCHLORIDE

REACTIONS (9)
  - Uterine perforation [None]
  - Pelvic pain [None]
  - Menorrhagia [None]
  - Device dislocation [None]
  - Emotional distress [None]
  - Anxiety [None]
  - Injury [None]
  - Depression [None]
  - Panic attack [None]

NARRATIVE: CASE EVENT DATE: 201212
